FAERS Safety Report 21112121 (Version 2)
Quarter: 2022Q3

REPORT INFORMATION
  Report Type: Spontaneous
  Country: US (occurrence: US)
  Receive Date: 20220721
  Receipt Date: 20220824
  Transmission Date: 20221027
  Serious: Yes (Other)
  Sender: FDA-Public Use
  Company Number: US-BEH-2022147629

PATIENT
  Sex: Female

DRUGS (6)
  1. HIZENTRA [Suspect]
     Active Substance: HUMAN IMMUNOGLOBULIN G
     Indication: Asthma
     Dosage: 10 GRAM, QW
     Route: 058
     Dates: start: 20210121
  2. HIZENTRA [Suspect]
     Active Substance: HUMAN IMMUNOGLOBULIN G
     Indication: Selective IgG subclass deficiency
     Dosage: 2 GRAM, QW
     Route: 058
     Dates: start: 20210121
  3. HIZENTRA [Suspect]
     Active Substance: HUMAN IMMUNOGLOBULIN G
     Indication: Malignant central nervous system neoplasm
     Dosage: 1 GRAM, QW
     Route: 058
     Dates: start: 20210121
  4. DUPILUMAB [Suspect]
     Active Substance: DUPILUMAB
     Indication: Malignant central nervous system neoplasm
     Dosage: 600 MILLIGRAM
     Route: 058
     Dates: start: 2019
  5. DUPILUMAB [Suspect]
     Active Substance: DUPILUMAB
     Indication: Selective IgG subclass deficiency
     Dosage: 300 MILLIGRAM, QOW
     Route: 058
     Dates: start: 2019
  6. DUPILUMAB [Suspect]
     Active Substance: DUPILUMAB
     Indication: Asthma
     Dosage: 300 UNK
     Route: 058
     Dates: start: 20210128

REACTIONS (5)
  - Pain [Recovered/Resolved]
  - Headache [Recovered/Resolved]
  - No adverse event [Unknown]
  - Off label use [Unknown]
  - Brain neoplasm malignant [Not Recovered/Not Resolved]
